FAERS Safety Report 22294487 (Version 1)
Quarter: 2023Q2

REPORT INFORMATION
  Report Type: Spontaneous
  Country: US (occurrence: None)
  Receive Date: 20230505
  Receipt Date: 20230505
  Transmission Date: 20230722
  Serious: Yes (Hospitalization)
  Sender: FDA-Public Use
  Company Number: None

PATIENT
  Sex: Male

DRUGS (1)
  1. EVEROLIMUS [Suspect]
     Active Substance: EVEROLIMUS
     Indication: Carcinoid syndrome
     Dosage: FREQUENCY : DAILY;?
     Route: 048
     Dates: start: 202303

REACTIONS (2)
  - Weight increased [None]
  - Fluid retention [None]
